FAERS Safety Report 7546307-0 (Version None)
Quarter: 2011Q2

REPORT INFORMATION
  Report Type: 
  Country: None (occurrence: None)
  Receive Date: 20110614
  Receipt Date: 20040607
  Transmission Date: 20111010
  Serious: Yes (Hospitalization)
  Sender: FDA-Public Use
  Company Number: PHFR2004GB02147

PATIENT
  Sex: Male
  Weight: 74 kg

DRUGS (6)
  1. HYOSCINE [Concomitant]
     Dosage: 300 MG/DAY
     Route: 048
     Dates: start: 20011001
  2. CLOZAPINE [Suspect]
     Indication: SCHIZOPHRENIA
     Dosage: UNKNOWN
     Route: 048
     Dates: start: 19930415
  3. LANSOPRAZOLE [Concomitant]
     Dosage: 15 MG/DAY
     Route: 048
     Dates: start: 20010831
  4. FOLIC ACID [Concomitant]
     Dosage: 5MG X 3 WEEKLY
     Route: 048
     Dates: start: 20021201
  5. CELECOXIB [Concomitant]
     Dosage: 200 MG/DAY
     Route: 048
     Dates: start: 20030312
  6. METHOTREXATE [Concomitant]
     Indication: PSORIATIC ARTHROPATHY
     Dosage: 17.5 MG/DAY
     Dates: start: 20021201

REACTIONS (4)
  - PYREXIA [None]
  - HAEMORRHOIDS [None]
  - RECTAL HAEMORRHAGE [None]
  - DIARRHOEA [None]
